FAERS Safety Report 12878711 (Version 2)
Quarter: 2016Q4

REPORT INFORMATION
  Report Type: Report from Study
  Country: None (occurrence: US)
  Receive Date: 20161024
  Receipt Date: 20161213
  Transmission Date: 20170207
  Serious: Yes (Hospitalization)
  Sender: FDA-Public Use
  Company Number: US-ABBVIE-16K-163-1760144-00

PATIENT
  Age: 21 Year
  Sex: Female
  Weight: 54.48 kg

DRUGS (3)
  1. SPRINTEC [Concomitant]
     Active Substance: ETHINYL ESTRADIOL\NORGESTIMATE
     Indication: CONTRACEPTION
  2. HUMIRA [Suspect]
     Active Substance: ADALIMUMAB
     Indication: CROHN^S DISEASE
     Route: 058
     Dates: start: 201604, end: 20160907
  3. VANCOMYCIN [Concomitant]
     Active Substance: VANCOMYCIN
     Indication: PRODUCT USED FOR UNKNOWN INDICATION

REACTIONS (8)
  - Arthralgia [Recovered/Resolved]
  - Nausea [Recovered/Resolved]
  - Faeces discoloured [Unknown]
  - Abscess intestinal [Recovered/Resolved]
  - Crohn^s disease [Recovered/Resolved]
  - Drug effect incomplete [Unknown]
  - Vomiting [Unknown]
  - Catheter site discharge [Unknown]

NARRATIVE: CASE EVENT DATE: 2016
